FAERS Safety Report 8765998 (Version 1)
Quarter: 2012Q4

REPORT INFORMATION
  Report Type: 
  Country: AU (occurrence: AU)
  Receive Date: 20120904
  Receipt Date: 20120904
  Transmission Date: 20130627
  Serious: Yes (Hospitalization)
  Sender: FDA-Public Use
  Company Number: AU-009507513-1208AUS012481

PATIENT

DRUGS (1)
  1. VICTRELIS [Suspect]
     Route: 048

REACTIONS (1)
  - Adverse event [Unknown]
